FAERS Safety Report 12195204 (Version 1)
Quarter: 2016Q1

REPORT INFORMATION
  Report Type: Spontaneous
  Country: US (occurrence: US)
  Receive Date: 20160321
  Receipt Date: 20160321
  Transmission Date: 20160526
  Serious: No
  Sender: FDA-Public Use
  Company Number: US-TEVA-570998USA

PATIENT
  Sex: Male

DRUGS (1)
  1. NORTRIPTYLINE [Suspect]
     Active Substance: NORTRIPTYLINE
     Indication: SPINAL COLUMN STENOSIS
     Dosage: FREQUENCY NOT PROVIDED
     Dates: start: 20150613

REACTIONS (2)
  - Pruritus [Unknown]
  - Skin reaction [Unknown]
